FAERS Safety Report 15854099 (Version 1)
Quarter: 2019Q1

REPORT INFORMATION
  Report Type: Spontaneous
  Country: US (occurrence: US)
  Receive Date: 20190121
  Receipt Date: 20190121
  Transmission Date: 20190417
  Serious: No
  Sender: FDA-Public Use
  Company Number: None

PATIENT
  Age: 39 Year
  Sex: Male
  Weight: 185 kg

DRUGS (1)
  1. AIMOVIG [Suspect]
     Active Substance: ERENUMAB-AOOE
     Indication: MIGRAINE
     Dosage: ?          OTHER FREQUENCY:ONCE EVERY 30 DAYS;?
     Route: 058
     Dates: start: 20181219, end: 20190118

REACTIONS (2)
  - Pain [None]
  - Skin discolouration [None]

NARRATIVE: CASE EVENT DATE: 20190118
